FAERS Safety Report 21459505 (Version 1)
Quarter: 2022Q4

REPORT INFORMATION
  Report Type: Spontaneous
  Country: US (occurrence: None)
  Receive Date: 20221014
  Receipt Date: 20221014
  Transmission Date: 20230113
  Serious: Yes (Hospitalization, Other)
  Sender: FDA-Public Use
  Company Number: 2022A342097

PATIENT
  Age: 629 Month
  Sex: Female

DRUGS (1)
  1. SYMBICORT [Suspect]
     Active Substance: BUDESONIDE\FORMOTEROL FUMARATE DIHYDRATE
     Indication: Chronic obstructive pulmonary disease
     Dosage: 160MCG/4.5MCG AS 2 PUFFS TWICE A DAY
     Route: 055

REACTIONS (13)
  - COVID-19 pneumonia [Recovered/Resolved]
  - Post-traumatic neck syndrome [Not Recovered/Not Resolved]
  - Limb injury [Recovered/Resolved]
  - Fall [Unknown]
  - Tendon rupture [Not Recovered/Not Resolved]
  - Surgical failure [Not Recovered/Not Resolved]
  - Pneumonia [Recovering/Resolving]
  - Road traffic accident [Unknown]
  - Scar [Not Recovered/Not Resolved]
  - Migraine [Not Recovered/Not Resolved]
  - Neck pain [Not Recovered/Not Resolved]
  - Wrong technique in device usage process [Unknown]
  - Device malfunction [Unknown]

NARRATIVE: CASE EVENT DATE: 20020901
